FAERS Safety Report 19974125 (Version 1)
Quarter: 2021Q4

REPORT INFORMATION
  Report Type: Spontaneous
  Country: US (occurrence: US)
  Receive Date: 20211020
  Receipt Date: 20211020
  Transmission Date: 20220303
  Serious: No
  Sender: FDA-Public Use
  Company Number: None

PATIENT
  Age: 49 Year
  Sex: Female

DRUGS (3)
  1. MEROPENEM\SODIUM CHLORIDE [Suspect]
     Active Substance: MEROPENEM\SODIUM CHLORIDE
  2. MEROPENEM [Concomitant]
     Active Substance: MEROPENEM
  3. MEROPENEM [Concomitant]
     Active Substance: MEROPENEM

REACTIONS (2)
  - Product packaging difficult to open [None]
  - Product packaging confusion [None]

NARRATIVE: CASE EVENT DATE: 20211004
